FAERS Safety Report 7733425-7 (Version None)
Quarter: 2011Q3

REPORT INFORMATION
  Report Type: 
  Country: None (occurrence: None)
  Receive Date: 20110817
  Receipt Date: 20110104
  Transmission Date: 20111222
  Serious: Yes (Other)
  Sender: FDA-Public Use
  Company Number: 20109825

PATIENT
  Sex: Female

DRUGS (3)
  1. LIORESAL [Suspect]
     Indication: MUSCLE SPASTICITY
     Dosage: DAILY, INTRATHECAL
     Route: 037
  2. BUPIVICAINE [Concomitant]
  3. DILAUDID [Concomitant]

REACTIONS (2)
  - PROCTALGIA [None]
  - THERAPEUTIC RESPONSE DECREASED [None]
